FAERS Safety Report 11336039 (Version 1)
Quarter: 2015Q3

REPORT INFORMATION
  Report Type: Report from Study
  Country: DE (occurrence: DE)
  Receive Date: 20150804
  Receipt Date: 20150804
  Transmission Date: 20151125
  Serious: Yes (Death)
  Sender: FDA-Public Use
  Company Number: DE-ABBVIE-15P-062-1428289-00

PATIENT
  Sex: Male

DRUGS (1)
  1. DUODOPA [Suspect]
     Active Substance: CARBIDOPA\LEVODOPA
     Indication: PARKINSON^S DISEASE
     Dosage: MD 10.5ML, CRD 7.3ML/H, CRN 5.0ML/H, ED 2ML
     Route: 050
     Dates: start: 20140211

REACTIONS (5)
  - Aggression [Not Recovered/Not Resolved]
  - Hallucination [Not Recovered/Not Resolved]
  - Diet refusal [Fatal]
  - Psychotic disorder [Not Recovered/Not Resolved]
  - General physical health deterioration [Fatal]
